FAERS Safety Report 5084801-5 (Version None)
Quarter: 2006Q3

REPORT INFORMATION
  Report Type: 
  Country: None (occurrence: None)
  Receive Date: 20060815
  Receipt Date: 20060807
  Transmission Date: 20061208
  Serious: Yes (Other)
  Sender: FDA-Public Use
  Company Number: B0433842A

PATIENT
  Age: 71 Year
  Sex: Female

DRUGS (3)
  1. LITHIUM CARBONATE [Suspect]
     Indication: DEPRESSION
  2. VENLAFAXINE HCL [Suspect]
     Indication: DEPRESSION
  3. METAMIZOLE MAGNESIUM [Concomitant]

REACTIONS (17)
  - ACTIVITIES OF DAILY LIVING IMPAIRED [None]
  - ANTICONVULSANT TOXICITY [None]
  - ANTIDEPRESSANT DRUG LEVEL INCREASED [None]
  - CONFUSIONAL STATE [None]
  - COORDINATION ABNORMAL [None]
  - DEPRESSED MOOD [None]
  - DIZZINESS [None]
  - DRUG INTOLERANCE [None]
  - IMPAIRED SELF-CARE [None]
  - MANIA [None]
  - MOOD SWINGS [None]
  - MYALGIA [None]
  - MYOCLONUS [None]
  - PSYCHOMOTOR RETARDATION [None]
  - SEROTONIN SYNDROME [None]
  - SOMNOLENCE [None]
  - TREMOR [None]
